FAERS Safety Report 7580929-6 (Version None)
Quarter: 2011Q2

REPORT INFORMATION
  Report Type: 
  Country: None (occurrence: None)
  Receive Date: 20110622
  Receipt Date: 20110607
  Transmission Date: 20111010
  Serious: Yes (Other)
  Sender: FDA-Public Use
  Company Number: 2011MA007247

PATIENT
  Age: 54 Year
  Sex: Male

DRUGS (3)
  1. RAMIPRIL [Suspect]
     Dosage: 5 MG; ; PO
     Route: 048
     Dates: start: 20060909, end: 20061106
  2. BENDROFLUMETHIAZIDE [Concomitant]
  3. CLOZARIL [Suspect]
     Indication: SCHIZOPHRENIA
     Dates: start: 20000914

REACTIONS (1)
  - MENTAL IMPAIRMENT [None]
